FAERS Safety Report 16130807 (Version 1)
Quarter: 2019Q1

REPORT INFORMATION
  Report Type: Spontaneous
  Country: CA (occurrence: US)
  Receive Date: 20190328
  Receipt Date: 20190328
  Transmission Date: 20190418
  Serious: Yes (Hospitalization)
  Sender: FDA-Public Use
  Company Number: CA-MYLANLABS-2019M1024666

PATIENT

DRUGS (4)
  1. AMLODIPINE BESILATE [Suspect]
     Active Substance: AMLODIPINE BESYLATE
     Indication: PRODUCT USED FOR UNKNOWN INDICATION
     Dosage: 2.5 MILLIGRAM, ONE AT NIGHT
  2. METOPROLOL. [Suspect]
     Active Substance: METOPROLOL
     Indication: PRODUCT USED FOR UNKNOWN INDICATION
     Dosage: 25 MILLIGRAM, BID
  3. LASIX [Suspect]
     Active Substance: FUROSEMIDE
     Indication: PRODUCT USED FOR UNKNOWN INDICATION
     Dosage: 20 MILLIGRAM, ONE EVERY 7 DAYS
  4. MYLAN-NITRO PATCH 0.4 [Suspect]
     Active Substance: NITROGLYCERIN
     Indication: ATRIOVENTRICULAR BLOCK
     Dosage: UNK UNK, QD
     Route: 062
     Dates: start: 201709

REACTIONS (4)
  - Dizziness [Recovered/Resolved]
  - Atrioventricular block [Unknown]
  - Nausea [Recovered/Resolved]
  - Blood pressure decreased [Unknown]
